FAERS Safety Report 7409617-3 (Version None)
Quarter: 2011Q1

REPORT INFORMATION
  Report Type: 
  Country: None (occurrence: None)
  Receive Date: 20110301
  Receipt Date: 20100609
  Transmission Date: 20110831
  Serious: Yes (Other)
  Sender: FDA-Public Use
  Company Number: RB-11080-2010

PATIENT
  Age: 30 Month
  Sex: Female

DRUGS (1)
  1. SUBOXONE [Suspect]
     Indication: PRODUCT USED FOR UNKNOWN INDICATION
     Dosage: (APPROXIMATELY 1/4 TAB (2MG) TAKEN ONCE ORAL)
     Route: 048
     Dates: start: 20100609, end: 20100609

REACTIONS (2)
  - NO ADVERSE EVENT [None]
  - ACCIDENTAL DRUG INTAKE BY CHILD [None]
